FAERS Safety Report 7042786-6 (Version None)
Quarter: 2010Q4

REPORT INFORMATION
  Report Type: 
  Country: None (occurrence: None)
  Receive Date: 20101013
  Receipt Date: 20091009
  Transmission Date: 20110411
  Serious: No
  Sender: FDA-Public Use
  Company Number: US-ASTRAZENECA-2009SE19173

PATIENT
  Sex: Female

DRUGS (3)
  1. SYMBICORT [Suspect]
     Dosage: 160/4.5 UG 2 PUFFS
     Route: 055
     Dates: start: 20080101, end: 20090101
  2. SYMBICORT [Suspect]
     Dosage: 160/4.5 UG 1 PUFFS
     Route: 055
     Dates: start: 20090101
  3. ALBUTEROL [Concomitant]
     Dosage: AS NEEDED

REACTIONS (2)
  - DRUG DOSE OMISSION [None]
  - DYSPNOEA [None]
